FAERS Safety Report 7532013-5 (Version None)
Quarter: 2011Q2

REPORT INFORMATION
  Report Type: 
  Country: None (occurrence: None)
  Receive Date: 20110608
  Receipt Date: 20110525
  Transmission Date: 20111010
  Serious: Yes (Hospitalization)
  Sender: FDA-Public Use
  Company Number: JP-NOVOPROD-318292

PATIENT
  Age: 56 Year
  Sex: Male

DRUGS (3)
  1. NOVOLIN R [Suspect]
     Indication: DIABETES MELLITUS
     Dosage: UNK
     Route: 058
     Dates: start: 20090101
  2. NOVORAPID 30 MIX CHU FLEXPEN [Suspect]
     Indication: DIABETES MELLITUS
     Dosage: UNK
     Route: 058
     Dates: start: 20090101
  3. LANTUS [Concomitant]
     Indication: DIABETES MELLITUS
     Route: 058

REACTIONS (4)
  - DIABETES MELLITUS INADEQUATE CONTROL [None]
  - INJECTION SITE ERYTHEMA [None]
  - INJECTION SITE SWELLING [None]
  - ANTI-INSULIN ANTIBODY INCREASED [None]
